FAERS Safety Report 15586298 (Version 1)
Quarter: 2018Q4

REPORT INFORMATION
  Report Type: Spontaneous
  Country: US (occurrence: US)
  Receive Date: 20181105
  Receipt Date: 20181105
  Transmission Date: 20190205
  Serious: Yes (Hospitalization, Disabling, Other)
  Sender: FDA-Public Use
  Company Number: US-JNJFOC-20181101752

PATIENT
  Age: 54 Year
  Sex: Female

DRUGS (1)
  1. INVOKANA [Suspect]
     Active Substance: CANAGLIFLOZIN
     Indication: TYPE 2 DIABETES MELLITUS
     Route: 048
     Dates: start: 20150706

REACTIONS (7)
  - Necrotising fasciitis [Recovering/Resolving]
  - Diabetic ketoacidosis [Recovered/Resolved]
  - Sepsis [Recovering/Resolving]
  - Acute kidney injury [Recovered/Resolved]
  - Peripheral ischaemia [Recovering/Resolving]
  - Leg amputation [Recovering/Resolving]
  - Diabetes mellitus inadequate control [Recovering/Resolving]

NARRATIVE: CASE EVENT DATE: 201604
